FAERS Safety Report 6856822-0 (Version None)
Quarter: 2010Q3

REPORT INFORMATION
  Report Type: 
  Country: None (occurrence: None)
  Receive Date: 20100719
  Receipt Date: 20100715
  Transmission Date: 20110219
  Serious: Yes (Other)
  Sender: FDA-Public Use
  Company Number: US-BRISTOL-MYERS SQUIBB COMPANY-15174816

PATIENT
  Age: 62 Year
  Sex: Male

DRUGS (4)
  1. ERBITUX [Suspect]
     Indication: COLON CANCER METASTATIC
     Dosage: 380MG IN TOTAL VOLUME OF 190ML
     Route: 042
     Dates: start: 20100104, end: 20100616
  2. IRINOTECAN HCL [Suspect]
     Dosage: 80MG IN 500ML NORMAL SALINE OVER 2 HOUR
  3. POTASSIUM CHLORIDE [Concomitant]
     Route: 048
  4. SLOW-MAG [Concomitant]
     Route: 048

REACTIONS (5)
  - CONTUSION [None]
  - HYPOCALCAEMIA [None]
  - HYPOKALAEMIA [None]
  - HYPOMAGNESAEMIA [None]
  - HYPOPHOSPHATAEMIA [None]
